FAERS Safety Report 9644632 (Version 1)
Quarter: 2013Q4

REPORT INFORMATION
  Report Type: Spontaneous
  Country: FR (occurrence: FR)
  Receive Date: 20131025
  Receipt Date: 20131025
  Transmission Date: 20140711
  Serious: Yes (Other)
  Sender: FDA-Public Use
  Company Number: FR-JNJFOC-20131012280

PATIENT
  Age: 52 Year
  Sex: Female

DRUGS (5)
  1. PREZISTA [Suspect]
     Indication: HIV INFECTION
     Route: 065
     Dates: start: 20131014
  2. PREZISTA [Suspect]
     Indication: HIV INFECTION
     Route: 065
     Dates: start: 20111128
  3. PREZISTA [Suspect]
     Indication: HIV INFECTION
     Route: 065
     Dates: start: 201308, end: 201309
  4. KIVEXA [Concomitant]
     Indication: HIV INFECTION
     Route: 065
     Dates: start: 20130311
  5. NORVIR [Concomitant]
     Indication: HIV INFECTION
     Route: 065
     Dates: start: 20130311

REACTIONS (2)
  - Eczema [Unknown]
  - Pruritus [Unknown]
